FAERS Safety Report 6720339-4 (Version None)
Quarter: 2010Q2

REPORT INFORMATION
  Report Type: 
  Country: None (occurrence: None)
  Receive Date: 20100507
  Receipt Date: 20090303
  Transmission Date: 20101027
  Serious: Yes (Other)
  Sender: FDA-Public Use
  Company Number: 1000013619

PATIENT
  Age: 51 Year
  Sex: Male

DRUGS (8)
  1. CITALOPRAM HYDROBROMIDE [Suspect]
     Dosage: 10 MG (10 MG, 1 IN 1 D), ORAL ; 20 MG, 1 IN 1 D), ORAL
     Route: 048
     Dates: start: 20081021, end: 20081027
  2. CITALOPRAM HYDROBROMIDE [Suspect]
     Dosage: 10 MG (10 MG, 1 IN 1 D), ORAL ; 20 MG, 1 IN 1 D), ORAL
     Route: 048
     Dates: start: 20081028
  3. CIATYL-(Z) [Suspect]
     Indication: HELICOBACTER GASTRITIS
     Dosage: 20 MG, (20 MG, 1 IN 1 D), ORAL ; 15 MG, (1 IN 1 D), ORAL, 5 MG (1 IN 1 D) ORAL; 10MG (10MG 1 IN 1 D)
     Route: 048
     Dates: start: 20080925, end: 20081014
  4. CIATYL-(Z) [Suspect]
     Indication: HELICOBACTER GASTRITIS
     Dosage: 20 MG, (20 MG, 1 IN 1 D), ORAL ; 15 MG, (1 IN 1 D), ORAL, 5 MG (1 IN 1 D) ORAL; 10MG (10MG 1 IN 1 D)
     Route: 048
     Dates: start: 20081015, end: 20081015
  5. CIATYL-(Z) [Suspect]
     Indication: HELICOBACTER GASTRITIS
     Dosage: 20 MG, (20 MG, 1 IN 1 D), ORAL ; 15 MG, (1 IN 1 D), ORAL, 5 MG (1 IN 1 D) ORAL; 10MG (10MG 1 IN 1 D)
     Route: 048
     Dates: start: 20081016, end: 20081016
  6. CIATYL-(Z) [Suspect]
     Indication: HELICOBACTER GASTRITIS
     Dosage: 20 MG, (20 MG, 1 IN 1 D), ORAL ; 15 MG, (1 IN 1 D), ORAL, 5 MG (1 IN 1 D) ORAL; 10MG (10MG 1 IN 1 D)
     Route: 048
     Dates: start: 20081028, end: 20081102
  7. DIPIPERON [Suspect]
     Dosage: ORAL
     Route: 048
     Dates: start: 20081021, end: 20081222
  8. AKINETON [Concomitant]

REACTIONS (1)
  - PLEUROTHOTONUS [None]
